FAERS Safety Report 6240408-5 (Version None)
Quarter: 2009Q2

REPORT INFORMATION
  Report Type: 
  Country: None (occurrence: None)
  Receive Date: 20090618
  Receipt Date: 20090618
  Transmission Date: 20091009
  Serious: Yes (Other)
  Sender: FDA-Public Use
  Company Number: None

PATIENT
  Sex: Male
  Weight: 78.4723 kg

DRUGS (1)
  1. SINGULAIR [Suspect]
     Indication: ASTHMA
     Dosage: 1 TABLET PER DAY PO
     Route: 048
     Dates: start: 20061015, end: 20090617

REACTIONS (7)
  - ASTHMA [None]
  - DEPRESSION [None]
  - DRUG EFFECT DECREASED [None]
  - HAEMORRHAGE [None]
  - RASH MACULAR [None]
  - SKIN HAEMORRHAGE [None]
  - SKIN LACERATION [None]
